FAERS Safety Report 19231251 (Version 1)
Quarter: 2021Q2

REPORT INFORMATION
  Report Type: Spontaneous
  Country: GB (occurrence: GB)
  Receive Date: 20210507
  Receipt Date: 20210507
  Transmission Date: 20210717
  Serious: Yes (Other)
  Sender: FDA-Public Use
  Company Number: GB-MYLANLABS-2021M1025497

PATIENT
  Age: 24 Year
  Sex: Male
  Weight: 125 kg

DRUGS (3)
  1. OLANZAPINE. [Suspect]
     Active Substance: OLANZAPINE
     Indication: ILL-DEFINED DISORDER
     Dosage: 25 MILLIGRAM
     Route: 048
     Dates: start: 20140326, end: 20160405
  2. ARIPIPRAZOLE. [Suspect]
     Active Substance: ARIPIPRAZOLE
     Indication: BIPOLAR DISORDER
  3. ARIPIPRAZOLE. [Suspect]
     Active Substance: ARIPIPRAZOLE
     Indication: ILL-DEFINED DISORDER
     Dosage: 400 MILLIGRAM
     Route: 048
     Dates: start: 20150523, end: 20160222

REACTIONS (7)
  - Liver disorder [Not Recovered/Not Resolved]
  - Medication error [Unknown]
  - Gambling disorder [Unknown]
  - Communication disorder [Unknown]
  - Erectile dysfunction [Unknown]
  - Hypersexuality [Recovering/Resolving]
  - Weight increased [Unknown]

NARRATIVE: CASE EVENT DATE: 20140822
